FAERS Safety Report 23712038 (Version 1)
Quarter: 2024Q2

REPORT INFORMATION
  Report Type: Spontaneous
  Country: IT (occurrence: IT)
  Receive Date: 20240405
  Receipt Date: 20240405
  Transmission Date: 20240715
  Serious: Yes (Death)
  Sender: FDA-Public Use
  Company Number: IT-ROCHE-3391935

PATIENT
  Age: 48 Year
  Sex: Female

DRUGS (16)
  1. DOXORUBICIN HYDROCHLORIDE [Suspect]
     Active Substance: DOXORUBICIN HYDROCHLORIDE
     Indication: Non-Hodgkin^s lymphoma unspecified histology indolent
     Dosage: UNK
     Route: 065
     Dates: start: 20221026, end: 20230308
  2. DOXORUBICIN HYDROCHLORIDE [Suspect]
     Active Substance: DOXORUBICIN HYDROCHLORIDE
     Indication: B-cell lymphoma
  3. RITUXIMAB [Suspect]
     Active Substance: RITUXIMAB
     Indication: Extranodal marginal zone B-cell lymphoma (MALT type)
     Dosage: UNK
     Route: 065
     Dates: start: 20180315, end: 20180830
  4. RITUXIMAB [Suspect]
     Active Substance: RITUXIMAB
     Indication: Non-Hodgkin^s lymphoma unspecified histology indolent
     Dosage: UNK
     Route: 065
     Dates: start: 20220826, end: 20230308
  5. RITUXIMAB [Suspect]
     Active Substance: RITUXIMAB
     Indication: B-cell lymphoma
     Dosage: UNK
     Route: 065
     Dates: start: 20230509, end: 20230510
  6. RITUXIMAB [Suspect]
     Active Substance: RITUXIMAB
     Dosage: UNK
     Route: 065
     Dates: start: 20221026, end: 20230308
  7. VINCRISTINE SULFATE [Suspect]
     Active Substance: VINCRISTINE SULFATE
     Indication: Non-Hodgkin^s lymphoma unspecified histology indolent
     Dosage: UNK
     Route: 065
     Dates: start: 20221026, end: 20230308
  8. VINCRISTINE SULFATE [Suspect]
     Active Substance: VINCRISTINE SULFATE
     Indication: B-cell lymphoma
  9. BENDAMUSTINE [Suspect]
     Active Substance: BENDAMUSTINE
     Indication: Non-Hodgkin^s lymphoma unspecified histology indolent
     Dosage: UNK
     Route: 065
     Dates: start: 20180315, end: 20180830
  10. BENDAMUSTINE [Suspect]
     Active Substance: BENDAMUSTINE
     Indication: Extranodal marginal zone B-cell lymphoma (MALT type)
     Dosage: UNK
     Route: 065
     Dates: start: 20230509, end: 20230510
  11. BENDAMUSTINE [Suspect]
     Active Substance: BENDAMUSTINE
     Indication: B-cell lymphoma
  12. PREDNISONE [Suspect]
     Active Substance: PREDNISONE
     Indication: Non-Hodgkin^s lymphoma unspecified histology indolent
     Dosage: UNK
     Route: 065
     Dates: start: 20221026, end: 20230308
  13. PREDNISONE [Suspect]
     Active Substance: PREDNISONE
     Indication: B-cell lymphoma
  14. POLIVY [Suspect]
     Active Substance: POLATUZUMAB VEDOTIN-PIIQ
     Indication: B-cell lymphoma
     Dosage: FREQ:21 D;
     Route: 065
     Dates: start: 20230509, end: 20230510
  15. CYCLOPHOSPHAMIDE [Suspect]
     Active Substance: CYCLOPHOSPHAMIDE
     Indication: Non-Hodgkin^s lymphoma unspecified histology indolent
     Dosage: UNK
     Dates: start: 20221026, end: 20230308
  16. CYCLOPHOSPHAMIDE [Suspect]
     Active Substance: CYCLOPHOSPHAMIDE
     Indication: B-cell lymphoma

REACTIONS (3)
  - Death [Fatal]
  - Neoplasm progression [Unknown]
  - Off label use [Unknown]

NARRATIVE: CASE EVENT DATE: 20230530
